FAERS Safety Report 14207585 (Version 2)
Quarter: 2018Q1

REPORT INFORMATION
  Report Type: Spontaneous
  Country: US (occurrence: US)
  Receive Date: 20171121
  Receipt Date: 20180208
  Transmission Date: 20180508
  Serious: Yes (Hospitalization)
  Sender: FDA-Public Use
  Company Number: US-JNJFOC-20171016264

PATIENT
  Age: 79 Year
  Sex: Male
  Weight: 122 kg

DRUGS (1)
  1. IMBRUVICA [Suspect]
     Active Substance: IBRUTINIB
     Indication: PRODUCT USED FOR UNKNOWN INDICATION
     Route: 048
     Dates: start: 20170814, end: 20171006

REACTIONS (2)
  - Pneumonia [Unknown]
  - Infection [Unknown]

NARRATIVE: CASE EVENT DATE: 20171006
